FAERS Safety Report 18365429 (Version 1)
Quarter: 2020Q4

REPORT INFORMATION
  Report Type: Spontaneous
  Country: US (occurrence: US)
  Receive Date: 20201009
  Receipt Date: 20201009
  Transmission Date: 20210114
  Serious: Yes (Other)
  Sender: FDA-Public Use
  Company Number: None

PATIENT
  Age: 27 Year
  Sex: Male
  Weight: 100.35 kg

DRUGS (13)
  1. ACETAZOLAMIDE. [Concomitant]
     Active Substance: ACETAZOLAMIDE
  2. IBUPROFEN. [Concomitant]
     Active Substance: IBUPROFEN
  3. CALTRATE+D [Concomitant]
  4. BENZOYL PEROXIDE. [Concomitant]
     Active Substance: BENZOYL PEROXIDE
  5. CLINDAMYCIN. [Concomitant]
     Active Substance: CLINDAMYCIN
  6. LIDOCAINE. [Concomitant]
     Active Substance: LIDOCAINE
  7. MIRALAX [Concomitant]
     Active Substance: POLYETHYLENE GLYCOL 3350
  8. VITAMIN B12 [Concomitant]
     Active Substance: CYANOCOBALAMIN
  9. TEMOZOLOMIDE. [Suspect]
     Active Substance: TEMOZOLOMIDE
     Indication: BRAIN NEOPLASM MALIGNANT
     Route: 048
     Dates: start: 20170926, end: 20201009
  10. ACIDOPHILUS [Concomitant]
     Active Substance: LACTOBACILLUS ACIDOPHILUS
  11. PROTONIX [Concomitant]
     Active Substance: PANTOPRAZOLE SODIUM
  12. METOPROLOL. [Concomitant]
     Active Substance: METOPROLOL
  13. SEROQUEL [Concomitant]
     Active Substance: QUETIAPINE FUMARATE

REACTIONS (1)
  - Hospice care [None]

NARRATIVE: CASE EVENT DATE: 20201009
